FAERS Safety Report 4474648-2 (Version None)
Quarter: 2004Q4

REPORT INFORMATION
  Report Type: 
  Country: None (occurrence: None)
  Receive Date: 20041012
  Receipt Date: 20040930
  Transmission Date: 20050328
  Serious: Yes (Death)
  Sender: FDA-Public Use
  Company Number: 2004236656IN

PATIENT
  Age: 67 Year
  Sex: Male

DRUGS (3)
  1. CYCLOPHOSPHAMIDE [Suspect]
     Indication: LYMPHOCYTIC LEUKAEMIA
     Dosage: THREE CYCLES GIVEN
  2. VINCRISTINE [Suspect]
     Indication: LYMPHOCYTIC LEUKAEMIA
  3. DELTA-CORTEF [Suspect]
     Indication: LYMPHOCYTIC LEUKAEMIA

REACTIONS (2)
  - ACUTE RESPIRATORY DISTRESS SYNDROME [None]
  - SEPSIS [None]
